FAERS Safety Report 23314328 (Version 7)
Quarter: 2024Q1

REPORT INFORMATION
  Report Type: Spontaneous
  Country: US (occurrence: US)
  Receive Date: 20231219
  Receipt Date: 20240328
  Transmission Date: 20240410
  Serious: Yes (Hospitalization)
  Sender: FDA-Public Use
  Company Number: US-Calliditas-2023CAL01659

PATIENT
  Age: 68 Year
  Sex: Female

DRUGS (1)
  1. TARPEYO [Suspect]
     Active Substance: BUDESONIDE
     Indication: IgA nephropathy
     Dosage: 16 MG (4 MG CAPSULES) ONCE DAILY
     Route: 048
     Dates: start: 20231121

REACTIONS (7)
  - Hemihypoaesthesia [Unknown]
  - Facial paralysis [Unknown]
  - Product dose omission issue [Recovered/Resolved]
  - Pulmonary mass [Unknown]
  - Blood pressure increased [Unknown]
  - Haemoptysis [Unknown]
  - Hospitalisation [Not Recovered/Not Resolved]
